FAERS Safety Report 5904021-9 (Version None)
Quarter: 2008Q3

REPORT INFORMATION
  Report Type: 
  Country: None (occurrence: None)
  Receive Date: 20080919
  Receipt Date: 20080717
  Transmission Date: 20090109
  Serious: No
  Sender: FDA-Public Use
  Company Number: US-WYE-H05182708

PATIENT
  Age: 71 Year
  Sex: Female

DRUGS (2)
  1. PRISTIQ [Suspect]
     Indication: DEPRESSION
     Dosage: TOOK SEVEN 50 MG TABLETS, ORAL
     Route: 048
     Dates: start: 20080717, end: 20080717
  2. NORVASC [Concomitant]

REACTIONS (2)
  - FEELING JITTERY [None]
  - OVERDOSE [None]
